FAERS Safety Report 22356768 (Version 3)
Quarter: 2023Q2

REPORT INFORMATION
  Report Type: Spontaneous
  Country: BR (occurrence: BR)
  Receive Date: 20230523
  Receipt Date: 20230530
  Transmission Date: 20230721
  Serious: Yes (Other)
  Sender: FDA-Public Use
  Company Number: BR-009507513-2305BRA004012

PATIENT
  Sex: Female

DRUGS (1)
  1. PEMBROLIZUMAB [Suspect]
     Active Substance: PEMBROLIZUMAB
     Indication: Bladder cancer
     Dosage: UNK

REACTIONS (4)
  - Hypoxia [Recovered/Resolved]
  - Hypertension [Recovered/Resolved]
  - Infusion related reaction [Unknown]
  - Infusion related reaction [Unknown]
